FAERS Safety Report 20483219 (Version 1)
Quarter: 2022Q1

REPORT INFORMATION
  Report Type: Other
  Country: None (occurrence: US)
  Receive Date: 20220217
  Receipt Date: 20220217
  Transmission Date: 20220423
  Serious: Yes (Other)
  Sender: FDA-Public Use
  Company Number: US-AptaPharma Inc.-2125955

PATIENT
  Age: 54 Year
  Sex: Male

DRUGS (1)
  1. SILDENAFIL FOR ORAL SUSPENSION [Suspect]
     Active Substance: SILDENAFIL CITRATE
     Indication: Erectile dysfunction
     Route: 065

REACTIONS (2)
  - Iridocyclitis [Recovered/Resolved]
  - Macular oedema [Recovered/Resolved]
